FAERS Safety Report 20435829 (Version 1)
Quarter: 2022Q1

REPORT INFORMATION
  Report Type: Spontaneous
  Country: US (occurrence: US)
  Receive Date: 20220207
  Receipt Date: 20220207
  Transmission Date: 20220424
  Serious: No
  Sender: FDA-Public Use
  Company Number: US-LUPIN PHARMACEUTICALS INC.-2022-01348

PATIENT
  Age: 55 Year
  Sex: Female

DRUGS (3)
  1. PENICILLAMINE [Suspect]
     Active Substance: PENICILLAMINE
     Indication: Nephrolithiasis
     Dosage: UNK
     Route: 065
  2. TIOPRONIN [Suspect]
     Active Substance: TIOPRONIN
     Indication: Nephrolithiasis
     Dosage: UNK
     Route: 065
  3. CAPTOPRIL [Suspect]
     Active Substance: CAPTOPRIL
     Indication: Nephrolithiasis
     Dosage: UNK
     Route: 065

REACTIONS (2)
  - Elastosis perforans [Recovering/Resolving]
  - Pseudoxanthoma elasticum-like syndrome [Recovering/Resolving]
